FAERS Safety Report 7761671-5 (Version None)
Quarter: 2011Q3

REPORT INFORMATION
  Report Type: 
  Country: None (occurrence: None)
  Receive Date: 20110920
  Receipt Date: 20110908
  Transmission Date: 20111222
  Serious: Yes (Hospitalization)
  Sender: FDA-Public Use
  Company Number: PHHY2011FR79615

PATIENT
  Sex: Female

DRUGS (17)
  1. TENORMIN [Concomitant]
     Dosage: 1 DF, BID
     Route: 048
     Dates: start: 20040101
  2. DICLOFENAC SODIUM [Concomitant]
     Dosage: 1 DF, BID
     Dates: start: 20040101
  3. LESCOL [Suspect]
     Dosage: 1 DF, QD
     Route: 048
     Dates: start: 20070801
  4. PRAZEPAM [Concomitant]
     Dosage: 1 DF, BID
     Route: 048
     Dates: start: 20080101
  5. VENTOLIN [Concomitant]
     Dosage: UNK
  6. DIMETANE [Concomitant]
     Dosage: 3 TSP, QD
     Route: 048
  7. CROMOGLICATE [Concomitant]
     Dosage: 3 DRP, UNK
  8. ALLOPURINOL [Concomitant]
     Dosage: 1 DF, QD
     Dates: start: 20050101
  9. DAFLON [Suspect]
     Dosage: 1 DF, TID
     Dates: start: 20050101
  10. FERROUS SULFATE TAB [Suspect]
     Dosage: 1 DF, QD
     Dates: start: 20080101
  11. IRBESARTAN AND HYDROCHLOROTHIAZIDE [Suspect]
     Dosage: 1 DF, QD
     Dates: start: 19980101
  12. ANAFRANIL [Concomitant]
     Dosage: 75 MG, QD
     Route: 048
  13. VOLTAREN [Concomitant]
     Dosage: 2 DF, TID
     Dates: start: 20070101
  14. ASPIRIN [Concomitant]
     Dosage: 1 DF, QD
     Dates: start: 20000101
  15. ESOMEPRAZOLE SODIUM [Concomitant]
     Dosage: 1 DF, QD
     Route: 048
     Dates: start: 20060801
  16. LOPERAMIDE [Concomitant]
     Dosage: 2 MG, PRN
  17. ACETAMINOPHEN [Concomitant]
     Dosage: 1 DF, TID
     Route: 048

REACTIONS (3)
  - DIARRHOEA [None]
  - VOMITING [None]
  - COLITIS MICROSCOPIC [None]
